FAERS Safety Report 22241138 (Version 2)
Quarter: 2023Q2

REPORT INFORMATION
  Report Type: Spontaneous
  Country: US (occurrence: US)
  Receive Date: 20230421
  Receipt Date: 20230518
  Transmission Date: 20230721
  Serious: Yes (Other)
  Sender: FDA-Public Use
  Company Number: US-OTSUKA-2023_009895

PATIENT

DRUGS (1)
  1. REXULTI [Suspect]
     Active Substance: BREXPIPRAZOLE
     Indication: Product used for unknown indication
     Dosage: UNK
     Route: 065

REACTIONS (11)
  - Thrombosis [Unknown]
  - Mood altered [Unknown]
  - Skin infection [Unknown]
  - Palpitations [Unknown]
  - Product packaging quantity issue [Unknown]
  - Product colour issue [Unknown]
  - Product physical issue [Unknown]
  - Physical product label issue [Unknown]
  - Product dispensing issue [Unknown]
  - Product label confusion [Unknown]
  - Suspected product tampering [Unknown]
